FAERS Safety Report 6127609-1 (Version None)
Quarter: 2009Q1

REPORT INFORMATION
  Report Type: 
  Country: None (occurrence: None)
  Receive Date: 20090323
  Receipt Date: 20090313
  Transmission Date: 20090719
  Serious: Yes (Other)
  Sender: FDA-Public Use
  Company Number: US-ABBOTT-09P-163-0562597-00

PATIENT
  Sex: Female

DRUGS (5)
  1. NIASPAN [Suspect]
     Indication: DRUG USE FOR UNKNOWN INDICATION
     Dates: end: 20080101
  2. VIT D [Concomitant]
     Indication: DRUG USE FOR UNKNOWN INDICATION
  3. RIMADEX [Concomitant]
     Indication: DRUG USE FOR UNKNOWN INDICATION
  4. BONIVA [Concomitant]
     Indication: DRUG USE FOR UNKNOWN INDICATION
  5. METFORMIN HCL [Concomitant]
     Indication: DRUG USE FOR UNKNOWN INDICATION

REACTIONS (3)
  - BREAST CANCER [None]
  - FEELING HOT [None]
  - FLUSHING [None]
